FAERS Safety Report 24873692 (Version 1)
Quarter: 2025Q1

REPORT INFORMATION
  Report Type: Spontaneous
  Country: US (occurrence: US)
  Receive Date: 20250122
  Receipt Date: 20250122
  Transmission Date: 20250408
  Serious: Yes (Hospitalization, Other)
  Sender: BAYER HEALTHCARE LLC
  Company Number: US-BAYER-2025A008305

PATIENT
  Sex: Male

DRUGS (8)
  1. ASPIRIN [Suspect]
     Active Substance: ASPIRIN
     Dosage: 325 MG, QD
  2. AMPICILLIN SODIUM\SULBACTAM SODIUM [Concomitant]
     Active Substance: AMPICILLIN SODIUM\SULBACTAM SODIUM
  3. VANCOMYCIN [Concomitant]
     Active Substance: VANCOMYCIN
  4. CEFTRIAXONE [Concomitant]
     Active Substance: CEFTRIAXONE
  5. DOXYCYCLINE [Concomitant]
     Active Substance: DOXYCYCLINE
     Dosage: 100 MG, BID
  6. HYDROXYCHLOROQUINE [Concomitant]
     Active Substance: HYDROXYCHLOROQUINE
     Indication: Hypertension
     Dosage: 200 MG, TID
  7. HYDROXYCHLOROQUINE [Concomitant]
     Active Substance: HYDROXYCHLOROQUINE
     Indication: Cardiac pacemaker insertion
  8. HYDROXYCHLOROQUINE [Concomitant]
     Active Substance: HYDROXYCHLOROQUINE
     Indication: Aortic valve replacement

REACTIONS (2)
  - Subarachnoid haemorrhage [None]
  - Haemoglobin decreased [None]
